FAERS Safety Report 8133372-5 (Version None)
Quarter: 2012Q1

REPORT INFORMATION
  Report Type: 
  Country: None (occurrence: None)
  Receive Date: 20120213
  Receipt Date: 20120207
  Transmission Date: 20120608
  Serious: Yes (Death, Other)
  Sender: FDA-Public Use
  Company Number: US-CELGENEUS-163-21880-12011639

PATIENT
  Sex: Male

DRUGS (7)
  1. LASIX [Concomitant]
     Dosage: 20 MILLIGRAM
     Route: 065
     Dates: start: 20111001
  2. REVLIMID [Suspect]
     Indication: MULTIPLE MYELOMA
     Dosage: 25 MILLIGRAM
     Route: 048
     Dates: start: 20110701
  3. REVLIMID [Suspect]
     Dosage: 15 MILLIGRAM
     Route: 048
     Dates: start: 20110901
  4. MEGACE [Concomitant]
     Indication: APPETITE DISORDER
     Dosage: 800 MILLIGRAM
     Route: 065
     Dates: start: 20110601
  5. VITAMIN B-12 [Concomitant]
     Dosage: 100 MILLIGRAM
     Route: 065
     Dates: start: 20110401
  6. ROSUVASTATIN [Concomitant]
     Dosage: 10 MILLIGRAM
     Route: 065
     Dates: start: 20070401
  7. DECADRON [Concomitant]
     Dosage: 40 MILLIGRAM
     Route: 065
     Dates: start: 20110301

REACTIONS (3)
  - MYOCARDIAL INFARCTION [None]
  - DIZZINESS [None]
  - HYPOTENSION [None]
